FAERS Safety Report 10221652 (Version 1)
Quarter: 2014Q2

REPORT INFORMATION
  Report Type: Spontaneous
  Country: GB (occurrence: GB)
  Receive Date: 20140606
  Receipt Date: 20140606
  Transmission Date: 20141212
  Serious: Yes (Other)
  Sender: FDA-Public Use
  Company Number: GB-PFIZER INC-2014152288

PATIENT
  Age: 76 Year
  Sex: Female

DRUGS (2)
  1. LYRICA [Suspect]
     Indication: NEURALGIA
     Dosage: 400 MG, DAILY
     Route: 048
  2. LYRICA [Suspect]
     Dosage: 50 MG, 2X/DAY IN THE MORNING AND IN THE EVENING
     Route: 048

REACTIONS (19)
  - Mental impairment [Unknown]
  - Loss of consciousness [Unknown]
  - Increased appetite [Unknown]
  - Disturbance in attention [Unknown]
  - Clumsiness [Unknown]
  - Fatigue [Unknown]
  - Diplopia [Unknown]
  - Vision blurred [Unknown]
  - Balance disorder [Unknown]
  - Fall [Unknown]
  - Peripheral swelling [Unknown]
  - Dyskinesia [Unknown]
  - Muscle twitching [Unknown]
  - Dysphagia [Unknown]
  - Dysgraphia [Unknown]
  - Speech disorder [Unknown]
  - Breast pain [Unknown]
  - Erythema [Unknown]
  - Blister [Unknown]
